FAERS Safety Report 5051226-8 (Version None)
Quarter: 2006Q3

REPORT INFORMATION
  Report Type: 
  Country: None (occurrence: None)
  Receive Date: 20060714
  Receipt Date: 20060330
  Transmission Date: 20061208
  Serious: Yes (Other)
  Sender: FDA-Public Use
  Company Number: GB-AVENTIS-200613646GDDC

PATIENT
  Age: 58 Year
  Sex: Female
  Weight: 80 kg

DRUGS (19)
  1. LANTUS [Suspect]
     Indication: DIABETES MELLITUS INSULIN-DEPENDENT
     Route: 058
     Dates: start: 20051209
  2. AUTOPEN INSULIN INJECTION PEN [Suspect]
  3. NOVORAPID [Suspect]
     Indication: DIABETES MELLITUS INSULIN-DEPENDENT
     Dates: start: 20051212
  4. ALLOPURINOL [Concomitant]
     Route: 048
  5. ASPIRIN SOLUTION [Concomitant]
     Route: 048
  6. ATORVASTATIN CALCIUM [Concomitant]
     Route: 048
  7. FUROSEMIDE [Concomitant]
     Route: 048
  8. FUSIDIC ACID 2% CREAM [Concomitant]
     Route: 061
  9. HYDROCORTISONE ACETATE CREAM 1% [Concomitant]
     Route: 061
  10. FYBOGEL [Concomitant]
  11. INSULIN LISPRO [Concomitant]
  12. LISINOPRIL [Concomitant]
     Route: 048
  13. LORMETAZEPAM [Concomitant]
     Route: 048
  14. METFORMIN HCL [Concomitant]
     Route: 048
  15. NITROLINGUAL PUMPSPRAY [Concomitant]
  16. PARACETAMOL [Concomitant]
     Route: 048
  17. SOTALOL HCL [Concomitant]
     Route: 048
  18. WARFARIN SODIUM [Concomitant]
     Route: 048
  19. WARFARIN SODIUM [Concomitant]
     Route: 048

REACTIONS (13)
  - ANGINA PECTORIS [None]
  - BLOOD POTASSIUM INCREASED [None]
  - COLD SWEAT [None]
  - DEAFNESS UNILATERAL [None]
  - DIABETES MELLITUS INADEQUATE CONTROL [None]
  - DYSPNOEA [None]
  - EYE OEDEMA [None]
  - HEART RATE IRREGULAR [None]
  - INSOMNIA [None]
  - INSULIN RESISTANCE [None]
  - MALAISE [None]
  - MYALGIA [None]
  - NERVOUS SYSTEM DISORDER [None]
